FAERS Safety Report 10896444 (Version 2)
Quarter: 2015Q1

REPORT INFORMATION
  Report Type: Spontaneous
  Country: TR (occurrence: TR)
  Receive Date: 20150309
  Receipt Date: 20150331
  Transmission Date: 20150721
  Serious: Yes (Other)
  Sender: FDA-Public Use
  Company Number: TR-AMGEN-TURSP2015019728

PATIENT
  Age: 85 Year
  Sex: Female
  Weight: 73 kg

DRUGS (13)
  1. PHOS NO [Concomitant]
     Indication: CHRONIC KIDNEY DISEASE
     Dosage: 1000 MG, QD 180 TABLETS
     Route: 048
  2. ARANESP [Suspect]
     Active Substance: DARBEPOETIN ALFA
     Indication: CHRONIC KIDNEY DISEASE
     Dosage: 30 MUG, QWK
     Route: 058
     Dates: start: 20150220, end: 20150320
  3. LIPITOR [Concomitant]
     Active Substance: ATORVASTATIN CALCIUM
     Indication: HYPERCHOLESTEROLAEMIA
     Dosage: 10 MG, QD
     Route: 048
  4. BONVIVA [Concomitant]
     Active Substance: IBANDRONATE SODIUM
     Indication: OSTEOPOROSIS
     Dosage: 150 MG, QMO 3 FTB
     Route: 048
  5. PANTOPRAZOLE [Concomitant]
     Active Substance: PANTOPRAZOLE SODIUM
     Dosage: UNK UNK, QD
     Route: 048
  6. ARICEPT [Concomitant]
     Active Substance: DONEPEZIL HYDROCHLORIDE
     Indication: DEMENTIA ALZHEIMER^S TYPE
     Dosage: 10 MG, QD
  7. DELTACORTRIL                       /00016201/ [Concomitant]
     Dosage: UNK UNK, QD 20 TABLET
     Route: 048
  8. BENEDAY [Concomitant]
     Indication: ARTHRITIS
     Dosage: 250/250/1/300 MG, QD
     Route: 048
     Dates: start: 20141128, end: 20150319
  9. URIKOLIZ [Concomitant]
     Active Substance: ALLOPURINOL
     Indication: GOUT
     Dosage: UNK UNK, QD 50 TABLET
     Route: 048
  10. ATACAND [Concomitant]
     Active Substance: CANDESARTAN CILEXETIL
     Indication: HYPERTENSION
     Dosage: 16 MG, QD 28 TABLETS
     Route: 048
  11. BENEXOL B12                        /00176001/ [Concomitant]
     Indication: VITAMIN B12 DEFICIENCY
     Dosage: 50 UNK, QD
     Route: 048
     Dates: start: 20140901
  12. LIPITOR [Concomitant]
     Active Substance: ATORVASTATIN CALCIUM
     Indication: HYPERLIPIDAEMIA
  13. FOLBIOL [Concomitant]
     Active Substance: FOLIC ACID
     Indication: FOLATE DEFICIENCY
     Dosage: UNK UNK, QD 50 TABLET
     Route: 048

REACTIONS (3)
  - Overdose [Unknown]
  - Blood pressure decreased [Unknown]
  - Intentional product misuse [Unknown]

NARRATIVE: CASE EVENT DATE: 20150223
